FAERS Safety Report 8595686-4 (Version None)
Quarter: 2012Q3

REPORT INFORMATION
  Report Type: 
  Country: None (occurrence: None)
  Receive Date: 20120801
  Receipt Date: 20120716
  Transmission Date: 20120928
  Serious: Yes (Hospitalization, Disabling, Other)
  Sender: FDA-Public Use
  Company Number: 2010MA003187

PATIENT
  Sex: Female
  Weight: 65.7716 kg

DRUGS (60)
  1. ESTROPIPATE [Concomitant]
  2. MIRTAZAPINE [Concomitant]
  3. VICOPROFEN [Concomitant]
  4. XANAX [Concomitant]
  5. FLUTICASONE PROPIONATE [Concomitant]
  6. ALBUTEROL [Concomitant]
  7. ANTIVERT [Concomitant]
  8. CLINDAMYCIN [Concomitant]
  9. CLONAZEPAM [Concomitant]
  10. HYDROXYZINE [Concomitant]
  11. NEXIUM [Concomitant]
  12. ONDANSETRON [Concomitant]
  13. PREDNISONE TAB [Concomitant]
  14. ALPRAZOLAM [Concomitant]
  15. ASPIRIN [Concomitant]
  16. BACLOFEN [Concomitant]
  17. OXYCODONE HCL [Concomitant]
  18. PROMETHAZINE [Concomitant]
  19. SINEMET [Concomitant]
  20. METHYLIN ER [Concomitant]
  21. MIRAPEX [Concomitant]
  22. OXYCODONE HCL AND ACETAMINOPHEN [Concomitant]
  23. PROCHLORPERAZINE [Concomitant]
  24. METOCLOPRAMIDE [Suspect]
     Indication: GASTROOESOPHAGEAL REFLUX DISEASE
     Dosage: 10 MG;AC + HS PRN;PO
     Route: 048
     Dates: start: 20050328, end: 20070601
  25. EFFEXOR [Concomitant]
  26. ENTOCORT EC [Concomitant]
  27. ERYTHROMYCIN [Concomitant]
  28. FENTANYL [Concomitant]
  29. HYDROCODONE BITARTRATE AND ACETAMINOPHEN [Concomitant]
  30. PANCREAZE [Concomitant]
  31. POLYETHYLENE GLYCOL [Concomitant]
  32. PROTONIX [Concomitant]
  33. ZITHROMAX [Concomitant]
  34. VITAMIN B-12 [Concomitant]
  35. CIPROFLOXACIN [Concomitant]
  36. CYCLOBENZAPRINE [Concomitant]
  37. DYAZIDE [Concomitant]
  38. FLUTICASONE PROPIONATE [Concomitant]
  39. KADIAN [Concomitant]
  40. LEVAQUIN [Concomitant]
  41. MECLIZINE [Concomitant]
  42. TRIAMTERENE [Concomitant]
  43. ABILIFY [Concomitant]
  44. ACULAR LS [Concomitant]
  45. DICLOFENAC [Concomitant]
  46. FOLIC ACID [Concomitant]
  47. IBUPROFEN [Concomitant]
  48. PREVACID [Concomitant]
  49. ZYMAR [Concomitant]
  50. ACTONEL [Concomitant]
  51. BONIVA [Concomitant]
  52. ESTROGEN [Concomitant]
  53. LAMICTAL [Concomitant]
  54. MEDROL [Concomitant]
  55. MOBIC [Concomitant]
  56. MULTI-VITAMINS [Concomitant]
  57. TRAMADOL HCL [Concomitant]
  58. TRIAMCINOLONE [Concomitant]
  59. TRIAMETERENE-HCTZ [Concomitant]
  60. ZELNORM [Concomitant]

REACTIONS (61)
  - EXTRAPYRAMIDAL DISORDER [None]
  - ECONOMIC PROBLEM [None]
  - EUPHORIC MOOD [None]
  - MUSCLE SPASMS [None]
  - DYSGRAPHIA [None]
  - SOMATOFORM DISORDER [None]
  - HEARING IMPAIRED [None]
  - PARKINSON'S DISEASE [None]
  - ASTHMA [None]
  - PAIN IN EXTREMITY [None]
  - HEAD INJURY [None]
  - MUSCULOSKELETAL STIFFNESS [None]
  - GAIT DISTURBANCE [None]
  - OEDEMA PERIPHERAL [None]
  - PYREXIA [None]
  - CHILLS [None]
  - DYSPNOEA [None]
  - PERSONALITY CHANGE [None]
  - HEADACHE [None]
  - JOINT SWELLING [None]
  - CONFUSIONAL STATE [None]
  - MICTURITION DISORDER [None]
  - ABDOMINAL PAIN [None]
  - TINNITUS [None]
  - JOINT RANGE OF MOTION DECREASED [None]
  - DEPRESSION [None]
  - HYPOPNOEA [None]
  - MUSCULOSKELETAL PAIN [None]
  - SPEECH DISORDER [None]
  - AMNESIA [None]
  - COGNITIVE DISORDER [None]
  - ACTIVITIES OF DAILY LIVING IMPAIRED [None]
  - FOOT DEFORMITY [None]
  - ABDOMINAL PAIN UPPER [None]
  - NIGHT SWEATS [None]
  - MUSCULAR WEAKNESS [None]
  - ANXIETY [None]
  - SOMNOLENCE [None]
  - EMOTIONAL DISORDER [None]
  - ARTHRALGIA [None]
  - PAIN IN JAW [None]
  - IMPAIRED DRIVING ABILITY [None]
  - INJURY [None]
  - VERTIGO POSITIONAL [None]
  - DIPLOPIA [None]
  - HYPOAESTHESIA [None]
  - ASTHENIA [None]
  - SCOLIOSIS [None]
  - DISTURBANCE IN ATTENTION [None]
  - VISUAL IMPAIRMENT [None]
  - REVERSIBLE AIRWAYS OBSTRUCTION [None]
  - INSOMNIA [None]
  - TARDIVE DYSKINESIA [None]
  - NAUSEA [None]
  - DIZZINESS [None]
  - MALAISE [None]
  - PAIN [None]
  - BONE PAIN [None]
  - MYALGIA [None]
  - SENSORY LOSS [None]
  - AFFECTIVE DISORDER [None]
